FAERS Safety Report 7644669-7 (Version None)
Quarter: 2011Q3

REPORT INFORMATION
  Report Type: 
  Country: None (occurrence: None)
  Receive Date: 20110729
  Receipt Date: 20110720
  Transmission Date: 20111222
  Serious: Yes (Hospitalization, Other)
  Sender: FDA-Public Use
  Company Number: US-ASTRAZENECA-2011SE03626

PATIENT
  Age: 71 Year
  Sex: Female
  Weight: 69.4 kg

DRUGS (18)
  1. ATACAND [Suspect]
     Route: 048
  2. ASPIRIN [Concomitant]
     Route: 048
  3. LEVOXYL [Concomitant]
     Route: 048
  4. FEXOFENADINE HCL [Concomitant]
     Route: 048
  5. ALLOPURINOL [Concomitant]
     Route: 048
  6. ALLOPURINOL [Concomitant]
     Route: 048
  7. ATACAND [Suspect]
     Route: 048
     Dates: start: 20000701
  8. TYLENOL-500 [Concomitant]
     Dosage: PRN
  9. LEVOXYL [Concomitant]
     Route: 048
  10. PEPCID [Concomitant]
  11. ATACAND [Suspect]
     Route: 048
  12. FUROSEMIDE [Concomitant]
     Route: 048
  13. FUROSEMIDE [Concomitant]
     Route: 048
  14. FISH OIL [Concomitant]
  15. ALBUTEROL SULFATE AUTOHALER [Concomitant]
     Dosage: INHALER PRN
  16. SIMVASTATIN [Concomitant]
     Dosage: 40 MG
     Route: 048
  17. PROAIR HFA [Concomitant]
     Dosage: 108 (90 BASE) MCG/ACT PRN
     Route: 055
  18. OMEGA 3 FATTY ACIDS [Concomitant]
     Dosage: 1000 MG
     Route: 048

REACTIONS (13)
  - WEIGHT DECREASED [None]
  - VITAMIN D DECREASED [None]
  - OEDEMA PERIPHERAL [None]
  - BLOOD UREA INCREASED [None]
  - MALIGNANT MELANOMA [None]
  - HYPERPARATHYROIDISM SECONDARY [None]
  - HEADACHE [None]
  - RASH GENERALISED [None]
  - RENAL FAILURE CHRONIC [None]
  - NEPHROSCLEROSIS [None]
  - DYSURIA [None]
  - SKIN NEOPLASM EXCISION [None]
  - BLOOD CREATININE INCREASED [None]
